FAERS Safety Report 13815545 (Version 1)
Quarter: 2017Q3

REPORT INFORMATION
  Report Type: Spontaneous
  Country: US (occurrence: US)
  Receive Date: 20170731
  Receipt Date: 20170731
  Transmission Date: 20171127
  Serious: Yes (Other)
  Sender: FDA-Public Use
  Company Number: None

PATIENT
  Age: 54 Year
  Sex: Male
  Weight: 89.1 kg

DRUGS (7)
  1. MULTI-VITAMINS [Concomitant]
  2. VALTREX [Concomitant]
     Active Substance: VALACYCLOVIR HYDROCHLORIDE
  3. TEVA 10 MG ZOLPIDEM [Suspect]
     Active Substance: ZOLPIDEM TARTRATE
  4. ALLOPURINOL. [Concomitant]
     Active Substance: ALLOPURINOL
  5. LIPITOR [Concomitant]
     Active Substance: ATORVASTATIN CALCIUM
  6. SANDOS 10 MG ZOLPIDEM [Suspect]
     Active Substance: ZOLPIDEM TARTRATE
     Indication: INSOMNIA
     Dosage: ?          QUANTITY:180 TABLET(S);?
     Route: 048
  7. ANDRGEL [Concomitant]

REACTIONS (2)
  - Drug ineffective [None]
  - Product substitution issue [None]

NARRATIVE: CASE EVENT DATE: 20170101
